FAERS Safety Report 5954620-3 (Version None)
Quarter: 2008Q4

REPORT INFORMATION
  Report Type: 
  Country: None (occurrence: None)
  Receive Date: 20081117
  Receipt Date: 20081111
  Transmission Date: 20090506
  Serious: Yes (Other)
  Sender: FDA-Public Use
  Company Number: US-AVENTIS-200816074US

PATIENT
  Sex: Male
  Weight: 18.55 kg

DRUGS (2)
  1. LANTUS [Suspect]
     Route: 058
     Dates: start: 20080126
  2. NOVOLOG [Concomitant]
     Dosage: DOSE: UNK

REACTIONS (2)
  - BLOOD GLUCOSE INCREASED [None]
  - WEIGHT DECREASED [None]
